FAERS Safety Report 12855222 (Version 1)
Quarter: 2016Q4

REPORT INFORMATION
  Report Type: Spontaneous
  Country: US (occurrence: US)
  Receive Date: 20161017
  Receipt Date: 20161017
  Transmission Date: 20170207
  Serious: Yes (Other)
  Sender: FDA-Public Use
  Company Number: US-BAUSCH-BL-2016-024324

PATIENT
  Age: 69 Year
  Sex: Male

DRUGS (1)
  1. PROVENGE [Suspect]
     Active Substance: SIPULEUCEL-T
     Indication: HORMONE-REFRACTORY PROSTATE CANCER
     Route: 042
     Dates: start: 20160930, end: 20160930

REACTIONS (6)
  - Agitation [Unknown]
  - Heart rate increased [Unknown]
  - Blood pressure increased [Unknown]
  - Aggression [Unknown]
  - Cerebrovascular accident [Unknown]
  - Dizziness [Unknown]

NARRATIVE: CASE EVENT DATE: 2016
